FAERS Safety Report 23870380 (Version 1)
Quarter: 2024Q2

REPORT INFORMATION
  Report Type: Spontaneous
  Country: QA (occurrence: QA)
  Receive Date: 20240517
  Receipt Date: 20240517
  Transmission Date: 20240716
  Serious: Yes (Other)
  Sender: FDA-Public Use
  Company Number: QA-AMGEN-QATSP2024093260

PATIENT

DRUGS (2)
  1. CINACALCET HYDROCHLORIDE [Suspect]
     Active Substance: CINACALCET HYDROCHLORIDE
     Indication: End stage renal disease
     Dosage: UNK, QWK, MILLIGRAM
     Route: 048
  2. ETELCALCETIDE [Suspect]
     Active Substance: ETELCALCETIDE
     Indication: End stage renal disease
     Dosage: UNK, QWK, MICROGRAM
     Route: 042

REACTIONS (3)
  - Aortic arteriosclerosis [Unknown]
  - Mitral valve calcification [Unknown]
  - Arteriosclerosis [Unknown]
